FAERS Safety Report 8421275-8 (Version None)
Quarter: 2012Q2

REPORT INFORMATION
  Report Type: 
  Country: None (occurrence: None)
  Receive Date: 20120608
  Receipt Date: 20120606
  Transmission Date: 20120825
  Serious: Yes (Death)
  Sender: FDA-Public Use
  Company Number: PH-B.I. PHARMACEUTICALS,INC./RIDGEFIELD-2012-CS-00819RP

PATIENT
  Age: 84 Year

DRUGS (2)
  1. PRADAXA [Suspect]
     Dosage: 150 MG
  2. HERBAL PRODUCT [Concomitant]

REACTIONS (1)
  - HAEMORRHAGE [None]
